FAERS Safety Report 5200558-9 (Version None)
Quarter: 2006Q4

REPORT INFORMATION
  Report Type: 
  Country: None (occurrence: None)
  Receive Date: 20061016
  Receipt Date: 20051121
  Transmission Date: 20070319
  Serious: Yes (Hospitalization, Other)
  Sender: FDA-Public Use
  Company Number: 2005159495

PATIENT
  Age: 57 Year
  Sex: Male
  Weight: 91.6266 kg

DRUGS (8)
  1. GABAPENTIN [Suspect]
     Indication: ILL-DEFINED DISORDER
     Dosage: ORAL
     Route: 048
     Dates: start: 20051105, end: 20051120
  2. FELODIPINE [Concomitant]
  3. AMITRIPTYLINE HCL [Concomitant]
  4. EMTRICITABINE (EMTRICITABINE) [Concomitant]
  5. TENOFOVIR (TENOFOVIR) [Concomitant]
  6. ATAZANAVIR (ATAZANAVIR) [Concomitant]
  7. ASPIRIN [Concomitant]
  8. RITONAVIR (RITONAVIR) [Concomitant]

REACTIONS (5)
  - ANGIONEUROTIC OEDEMA [None]
  - BILIRUBIN CONJUGATED INCREASED [None]
  - BLOOD ALKALINE PHOSPHATASE INCREASED [None]
  - BLOOD BILIRUBIN INCREASED [None]
  - BLOOD SODIUM DECREASED [None]
